FAERS Safety Report 14580881 (Version 1)
Quarter: 2018Q1

REPORT INFORMATION
  Report Type: Other
  Country: IT (occurrence: IT)
  Receive Date: 20180228
  Receipt Date: 20180228
  Transmission Date: 20180509
  Serious: Yes (Other)
  Sender: FDA-Public Use
  Company Number: IT-MACLEODS PHARMACEUTICALS US LTD-MAC2018010375

PATIENT

DRUGS (1)
  1. LEVOFLOXACIN 500MG TABLET [Suspect]
     Active Substance: LEVOFLOXACIN
     Indication: UPPER RESPIRATORY TRACT INFECTION
     Dosage: 500 MG, UNK
     Route: 048
     Dates: start: 20170531, end: 20170531

REACTIONS (2)
  - Palatal oedema [Recovering/Resolving]
  - Erythema [Recovering/Resolving]

NARRATIVE: CASE EVENT DATE: 20170601
